FAERS Safety Report 5427400-5 (Version None)
Quarter: 2007Q3

REPORT INFORMATION
  Report Type: 
  Country: None (occurrence: None)
  Receive Date: 20070824
  Receipt Date: 20070824
  Transmission Date: 20080115
  Serious: Yes (Hospitalization)
  Sender: FDA-Public Use
  Company Number: None

PATIENT
  Age: 47 Year
  Sex: Male
  Weight: 44.9061 kg

DRUGS (9)
  1. LIPITOR [Suspect]
     Indication: HYPERLIPIDAEMIA
     Dosage: 80 MG DAILY PO
     Route: 048
     Dates: start: 20070801, end: 20070817
  2. GEMFIBROZIL [Suspect]
     Dosage: 600 MG BID PO
     Route: 048
     Dates: start: 20070101, end: 20070817
  3. REYATAZ [Concomitant]
  4. ZIAGEN [Concomitant]
  5. FLOMAX [Concomitant]
  6. EPIVIR [Concomitant]
  7. RETROVIR [Concomitant]
  8. SODIUM BICARBONATE [Concomitant]
  9. ALTACE [Concomitant]

REACTIONS (5)
  - DEHYDRATION [None]
  - HYPERKALAEMIA [None]
  - METABOLIC ACIDOSIS [None]
  - RENAL FAILURE ACUTE [None]
  - RHABDOMYOLYSIS [None]
